FAERS Safety Report 8423367-6 (Version None)
Quarter: 2012Q2

REPORT INFORMATION
  Report Type: 
  Country: None (occurrence: None)
  Receive Date: 20120608
  Receipt Date: 20120529
  Transmission Date: 20120825
  Serious: Yes (Hospitalization, Other)
  Sender: FDA-Public Use
  Company Number: US-BAXTER-2012BAX003053

PATIENT
  Sex: Male
  Weight: 81.82 kg

DRUGS (12)
  1. CELEBREX [Concomitant]
     Route: 048
  2. CYANOCOBALAMIN [Concomitant]
     Route: 048
  3. GAMMAGARD LIQUID [Suspect]
     Dosage: 15-20 GRAMS
     Route: 042
     Dates: start: 20110101
  4. VALTREX [Concomitant]
     Route: 048
     Dates: start: 20090101
  5. CLARINEX-D [Concomitant]
     Indication: CHRONIC SINUSITIS
     Route: 065
     Dates: end: 20120401
  6. GAMMAGARD LIQUID [Suspect]
     Dosage: 15-20 GRAMS
     Route: 042
     Dates: start: 20120119, end: 20120119
  7. GAMMAGARD LIQUID [Suspect]
     Dosage: 15-20 GRAMS
     Route: 042
     Dates: start: 20120404, end: 20120404
  8. GAMMAGARD LIQUID [Suspect]
     Dates: start: 20120530, end: 20120530
  9. NEXIUM [Concomitant]
     Route: 048
  10. AMLODIPINE BESYLATE [Concomitant]
     Route: 048
  11. VITAMIN B-12 [Concomitant]
     Route: 048
  12. LEVOXYL [Concomitant]
     Route: 048

REACTIONS (13)
  - FATIGUE [None]
  - TRANSIENT ISCHAEMIC ATTACK [None]
  - DIARRHOEA [None]
  - PYREXIA [None]
  - INFLUENZA [None]
  - HEADACHE [None]
  - EMOTIONAL DISTRESS [None]
  - ABDOMINAL PAIN UPPER [None]
  - NASOPHARYNGITIS [None]
  - THERAPEUTIC RESPONSE UNEXPECTED [None]
  - GASTROINTESTINAL DISORDER [None]
  - DIZZINESS [None]
  - OROPHARYNGEAL PAIN [None]
